FAERS Safety Report 4924034-3 (Version None)
Quarter: 2006Q1

REPORT INFORMATION
  Report Type: 
  Country: None (occurrence: None)
  Receive Date: 20060221
  Receipt Date: 20060209
  Transmission Date: 20060701
  Serious: Yes (Other)
  Sender: FDA-Public Use
  Company Number: 2006020222

PATIENT
  Sex: Male
  Weight: 99.7913 kg

DRUGS (1)
  1. UNISOM [Suspect]
     Indication: SLEEP DISORDER
     Dosage: 1 SLEEP GEL DAILY; ORAL
     Route: 048
     Dates: start: 20010101

REACTIONS (2)
  - BLOOD GROWTH HORMONE ABNORMAL [None]
  - PITUITARY TUMOUR [None]
